FAERS Safety Report 17465775 (Version 1)
Quarter: 2020Q1

REPORT INFORMATION
  Report Type: Spontaneous
  Country: US (occurrence: US)
  Receive Date: 20200227
  Receipt Date: 20200227
  Transmission Date: 20200409
  Serious: Yes (Life-Threatening, Hospitalization)
  Sender: FDA-Public Use
  Company Number: US-TEVA-2020-US-1190198

PATIENT
  Age: 79 Year
  Sex: Female

DRUGS (3)
  1. PLAVIX [Concomitant]
     Active Substance: CLOPIDOGREL BISULFATE
     Indication: CEREBROVASCULAR ACCIDENT
     Route: 065
  2. DILTIAZEM. [Suspect]
     Active Substance: DILTIAZEM
     Indication: ATRIAL FIBRILLATION
     Route: 065
  3. VERAPAMIL [Suspect]
     Active Substance: VERAPAMIL HYDROCHLORIDE
     Indication: VASOSPASM
     Dosage: STARTED AT 40 MG IN THE FLUSHING BAG; TOTAL DOSE THROUGHOUT THE PROCEDURE 160 MG
     Route: 013

REACTIONS (3)
  - Pulmonary oedema [Unknown]
  - Procedural hypotension [Recovering/Resolving]
  - Hypoxia [Unknown]
